FAERS Safety Report 16690146 (Version 1)
Quarter: 2019Q3

REPORT INFORMATION
  Report Type: Spontaneous
  Country: CN (occurrence: CN)
  Receive Date: 20190809
  Receipt Date: 20190809
  Transmission Date: 20191004
  Serious: Yes (Hospitalization)
  Sender: FDA-Public Use
  Company Number: PHHY2019CN185343

PATIENT
  Age: 35 Year
  Sex: Male

DRUGS (1)
  1. ACICLOVIR [Suspect]
     Active Substance: ACYCLOVIR
     Indication: ENCEPHALITIS VIRAL
     Route: 065

REACTIONS (14)
  - Irritability [Recovered/Resolved]
  - Palpitations [Recovered/Resolved]
  - Aggression [Recovered/Resolved]
  - Seizure [Recovered/Resolved]
  - Crying [Recovered/Resolved]
  - Hallucination, auditory [Recovered/Resolved]
  - Abnormal dreams [Recovered/Resolved]
  - Pyrexia [Recovered/Resolved]
  - Encephalitis viral [Recovered/Resolved]
  - Memory impairment [Recovered/Resolved]
  - Mental disorder [Recovered/Resolved]
  - Loss of consciousness [Recovered/Resolved]
  - Insomnia [Recovered/Resolved]
  - Muscle twitching [Recovered/Resolved]
